FAERS Safety Report 6612521-1 (Version None)
Quarter: 2010Q1

REPORT INFORMATION
  Report Type: 
  Country: None (occurrence: None)
  Receive Date: 20100303
  Receipt Date: 20100222
  Transmission Date: 20100710
  Serious: Yes (Death)
  Sender: FDA-Public Use
  Company Number: JP-PFIZER INC-2010016989

PATIENT
  Age: 67 Year
  Sex: Female
  Weight: 42 kg

DRUGS (7)
  1. SILDENAFIL CITRATE [Suspect]
     Indication: PULMONARY ARTERIAL HYPERTENSION
     Dosage: UNK
     Route: 048
     Dates: start: 20091111
  2. ASPIRIN [Concomitant]
     Route: 048
     Dates: start: 20031001
  3. GASTER [Concomitant]
     Route: 048
     Dates: start: 20031001
  4. JUVELA NICOTINATE [Concomitant]
     Route: 048
     Dates: start: 20031001
  5. PROCYLIN [Concomitant]
     Route: 048
     Dates: start: 20031001
  6. MUCODYNE [Concomitant]
     Route: 048
     Dates: start: 20090808
  7. RESPLEN [Concomitant]
     Route: 048
     Dates: start: 20080916

REACTIONS (1)
  - DEATH [None]
